FAERS Safety Report 8539342-7 (Version None)
Quarter: 2012Q3

REPORT INFORMATION
  Report Type: 
  Country: None (occurrence: None)
  Receive Date: 20120726
  Receipt Date: 20110722
  Transmission Date: 20120928
  Serious: No
  Sender: FDA-Public Use
  Company Number: US-ASTRAZENECA-2011SE44150

PATIENT
  Age: 55 Year
  Sex: Female

DRUGS (1)
  1. SEROQUEL [Suspect]
     Route: 048
     Dates: start: 20060101

REACTIONS (5)
  - EXPIRED DRUG ADMINISTERED [None]
  - DELUSION [None]
  - SOMNOLENCE [None]
  - SNORING [None]
  - DEPRESSED MOOD [None]
